FAERS Safety Report 10964195 (Version 2)
Quarter: 2016Q1

REPORT INFORMATION
  Report Type: Spontaneous
  Country: DK (occurrence: DK)
  Receive Date: 20150329
  Receipt Date: 20160131
  Transmission Date: 20160525
  Serious: Yes (Hospitalization, Other)
  Sender: FDA-Public Use
  Company Number: PHHY2015DK034034

PATIENT
  Age: 64 Year
  Sex: Female

DRUGS (4)
  1. PREDNISOLONE. [Concomitant]
     Active Substance: PREDNISOLONE
     Indication: PRODUCT USED FOR UNKNOWN INDICATION
     Dosage: UNK
     Route: 065
     Dates: start: 20131017
  2. ZOMETA [Suspect]
     Active Substance: ZOLEDRONIC ACID
     Indication: METASTASES TO BONE
     Dosage: 4 MG,
     Route: 042
     Dates: start: 20120306, end: 20130703
  3. XGEVA [Suspect]
     Active Substance: DENOSUMAB
     Indication: METASTASES TO BONE
     Dosage: 120 MG,
     Route: 058
     Dates: start: 20130703, end: 20140627
  4. BONDRONAT [Suspect]
     Active Substance: IBANDRONIC ACID
     Indication: METASTASES TO BONE
     Dosage: 50 MG, UNK
     Route: 048
     Dates: start: 20090801, end: 20111101

REACTIONS (5)
  - Osteonecrosis of jaw [Not Recovered/Not Resolved]
  - Tooth extraction [Recovered/Resolved]
  - Pain in jaw [Unknown]
  - Sequestrectomy [Recovered/Resolved]
  - Exposed bone in jaw [Recovered/Resolved]

NARRATIVE: CASE EVENT DATE: 20141117
